FAERS Safety Report 15808280 (Version 4)
Quarter: 2023Q2

REPORT INFORMATION
  Report Type: Spontaneous
  Country: AT (occurrence: AT)
  Receive Date: 20190110
  Receipt Date: 20230418
  Transmission Date: 20230722
  Serious: Yes (Other)
  Sender: FDA-Public Use
  Company Number: AT-BRISTOL-MYERS SQUIBB COMPANY-BMS-2018-124095

PATIENT
  Age: 49 Year
  Sex: Female

DRUGS (6)
  1. SPRYCEL [Suspect]
     Active Substance: DASATINIB
     Indication: Chronic myeloid leukaemia
     Dosage: 50 MILLIGRAM, 3 TIMES/WK?50 MG, TIW
     Dates: start: 20160409, end: 201609
  2. BOSULIF [Suspect]
     Active Substance: BOSUTINIB MONOHYDRATE
     Indication: Chronic myeloid leukaemia
     Dosage: UNK
     Dates: start: 20161027
  3. GLIVEC [Suspect]
     Active Substance: IMATINIB MESYLATE
     Indication: Chronic myeloid leukaemia
     Dosage: 400 MILLIGRAM, QD
     Dates: start: 20160219, end: 20160310
  4. ICLUSIG [Suspect]
     Active Substance: PONATINIB
     Indication: Chronic myeloid leukaemia
     Dosage: UNK
     Dates: start: 20160922, end: 20160927
  5. NILOTINIB [Suspect]
     Active Substance: NILOTINIB
     Indication: Chronic myeloid leukaemia
     Dosage: 150 MILLIGRAM, BID
     Dates: start: 20170105, end: 20170113
  6. ONDANSETRON HYDROCHLORIDE [Suspect]
     Active Substance: ONDANSETRON HYDROCHLORIDE
     Indication: Nausea

REACTIONS (9)
  - Capillary leak syndrome [Unknown]
  - Pancytopenia [Not Recovered/Not Resolved]
  - Cytopenia [Unknown]
  - Skin toxicity [Unknown]
  - Therapeutic response decreased [Unknown]
  - Nausea [Unknown]
  - Myelodysplastic syndrome [Unknown]
  - Cytogenetic analysis abnormal [Unknown]
  - Off label use [Unknown]
